FAERS Safety Report 25834286 (Version 1)
Quarter: 2025Q3

REPORT INFORMATION
  Report Type: Spontaneous
  Country: EU (occurrence: EU)
  Receive Date: 20250923
  Receipt Date: 20250923
  Transmission Date: 20251021
  Serious: Yes (Hospitalization, Other)
  Sender: SANDOZ
  Company Number: EU-BRISTOL-MYERS SQUIBB COMPANY-BMS-2021-093802

PATIENT
  Age: 74 Year
  Sex: Female

DRUGS (8)
  1. BELATACEPT [Suspect]
     Active Substance: BELATACEPT
     Indication: Nephrosclerosis
     Route: 065
  2. MYCOPHENOLATE MOFETIL [Suspect]
     Active Substance: MYCOPHENOLATE MOFETIL
     Indication: Renal transplant
     Route: 065
     Dates: start: 201802
  3. PREDNISONE [Suspect]
     Active Substance: PREDNISONE
     Indication: Renal transplant
     Route: 065
     Dates: start: 201802
  4. TACROLIMUS [Suspect]
     Active Substance: TACROLIMUS
     Dosage: 4 MG, QD
     Route: 065
     Dates: start: 201802, end: 20180227
  5. TACROLIMUS [Suspect]
     Active Substance: TACROLIMUS
     Indication: Renal transplant
     Dosage: 8 MG, QD
     Route: 065
     Dates: start: 20180216, end: 201802
  6. THYMOGLOBULIN [Suspect]
     Active Substance: LAPINE T-LYMPHOCYTE IMMUNE GLOBULIN
     Indication: Renal transplant
     Route: 065
     Dates: start: 201802
  7. POLYETHYLENE GLYCOLS [Concomitant]
     Active Substance: POLYETHYLENE GLYCOLS
     Indication: Colonoscopy
     Route: 065
  8. VALGANCICLOVIR [Concomitant]
     Active Substance: VALGANCICLOVIR
     Indication: Antiviral prophylaxis
     Dosage: 450 MG, QD
     Route: 048
     Dates: start: 201802, end: 2018

REACTIONS (5)
  - Intestinal haemorrhage [Unknown]
  - Cytomegalovirus enteritis [Unknown]
  - Thrombotic microangiopathy [Recovered/Resolved]
  - Complications of transplanted kidney [Unknown]
  - Immunosuppressant drug level [Unknown]

NARRATIVE: CASE EVENT DATE: 20180201
